FAERS Safety Report 7462341-3 (Version None)
Quarter: 2011Q2

REPORT INFORMATION
  Report Type: 
  Country: None (occurrence: None)
  Receive Date: 20110506
  Receipt Date: 20110503
  Transmission Date: 20111010
  Serious: Yes (Other)
  Sender: FDA-Public Use
  Company Number: US-PFIZER INC-2011095355

PATIENT
  Sex: Male

DRUGS (1)
  1. LIPITOR [Suspect]
     Dosage: UNK
     Dates: start: 20101201, end: 20110401

REACTIONS (7)
  - IMPAIRED DRIVING ABILITY [None]
  - GAIT DISTURBANCE [None]
  - MYALGIA [None]
  - HYPOKINESIA [None]
  - LETHARGY [None]
  - DYSSTASIA [None]
  - PAIN [None]
